FAERS Safety Report 7926833-2 (Version None)
Quarter: 2011Q4

REPORT INFORMATION
  Report Type: 
  Country: None (occurrence: None)
  Receive Date: 20111118
  Receipt Date: 20111115
  Transmission Date: 20120403
  Serious: Yes (Other)
  Sender: FDA-Public Use
  Company Number: US-PFIZER INC-2011239224

PATIENT
  Sex: Female
  Weight: 61.2 kg

DRUGS (8)
  1. LEVOTHYROXINE [Concomitant]
     Indication: HYPOTHYROIDISM
     Dosage: 50 MCG
  2. PROZAC [Concomitant]
     Dosage: UNK, DAILY
  3. LYRICA [Suspect]
     Indication: NERVE INJURY
     Dosage: 75 MG, 2X/DAY
     Route: 048
     Dates: start: 20111004, end: 20111005
  4. LYRICA [Suspect]
     Indication: COMPLEX REGIONAL PAIN SYNDROME
  5. LYRICA [Suspect]
  6. LYRICA [Suspect]
     Indication: NEUROPATHY PERIPHERAL
  7. ASPIRIN [Concomitant]
     Dosage: UNK
  8. VITAMIN D [Concomitant]
     Dosage: UNK

REACTIONS (7)
  - ABASIA [None]
  - GAIT DISTURBANCE [None]
  - DIZZINESS [None]
  - BALANCE DISORDER [None]
  - FEAR [None]
  - DYSARTHRIA [None]
  - CONFUSIONAL STATE [None]
